FAERS Safety Report 26019954 (Version 1)
Quarter: 2025Q4

REPORT INFORMATION
  Report Type: Spontaneous
  Country: US (occurrence: US)
  Receive Date: 20251110
  Receipt Date: 20251110
  Transmission Date: 20260117
  Serious: No
  Sender: GALPHARM INTERNATIONAL
  Company Number: US-PERRIGO-25US002499

PATIENT
  Sex: Male
  Weight: 61.224 kg

DRUGS (1)
  1. POLYETHYLENE GLYCOL 3350 [Suspect]
     Active Substance: POLYETHYLENE GLYCOL 3350
     Indication: Constipation
     Dosage: 17 G, QD PRN
     Dates: start: 20091006, end: 20250217

REACTIONS (1)
  - Rectal discharge [Recovered/Resolved]

NARRATIVE: CASE EVENT DATE: 20240101
